FAERS Safety Report 21642739 (Version 1)
Quarter: 2022Q4

REPORT INFORMATION
  Report Type: Spontaneous
  Country: US (occurrence: US)
  Receive Date: 20221125
  Receipt Date: 20221125
  Transmission Date: 20230113
  Serious: No
  Sender: FDA-Public Use
  Company Number: US-SA-SAC20221121001495

PATIENT
  Sex: Female

DRUGS (1)
  1. DUPIXENT [Suspect]
     Active Substance: DUPILUMAB
     Indication: Eczema
     Dosage: 200MG, OTHER
     Route: 058

REACTIONS (6)
  - Eye pain [Unknown]
  - Eye colour change [Unknown]
  - Eczema [Unknown]
  - Eye swelling [Unknown]
  - Skin exfoliation [Unknown]
  - Eye irritation [Unknown]
